FAERS Safety Report 9186382 (Version 2)
Quarter: 2013Q2

REPORT INFORMATION
  Report Type: Spontaneous
  Country: CA (occurrence: CA)
  Receive Date: 20130325
  Receipt Date: 20130409
  Transmission Date: 20140414
  Serious: Yes (Other)
  Sender: FDA-Public Use
  Company Number: CA-AMGEN-CANSP2013018988

PATIENT
  Age: 57 Year
  Sex: Female

DRUGS (4)
  1. ENBREL [Suspect]
     Indication: ANKYLOSING SPONDYLITIS
     Dosage: UNK
     Dates: start: 20100603
  2. CELEBREX [Concomitant]
     Dosage: UNK
  3. SYMBICORT [Concomitant]
     Dosage: UNK
  4. VENTOLIN                           /00139501/ [Concomitant]
     Dosage: UNK

REACTIONS (8)
  - Mitral valve incompetence [Unknown]
  - Tricuspid valve incompetence [Unknown]
  - Chills [Unknown]
  - Amnesia [Unknown]
  - Fatigue [Unknown]
  - Hypotension [Unknown]
  - Condition aggravated [Unknown]
  - Influenza [Recovered/Resolved]
